FAERS Safety Report 4358702-1 (Version None)
Quarter: 2004Q2

REPORT INFORMATION
  Report Type: 
  Country: None (occurrence: None)
  Receive Date: 20040511
  Receipt Date: 20040428
  Transmission Date: 20050107
  Serious: Yes (Hospitalization, Other)
  Sender: FDA-Public Use
  Company Number: 2004030145

PATIENT
  Age: 42 Year
  Sex: Female
  Weight: 54.4316 kg

DRUGS (2)
  1. DILANTIN KAPSEAL [Suspect]
     Indication: CONVULSION
     Dosage: 200 MG  BIG, ORAL
     Route: 048
  2. VISINE EYE DROPS [Suspect]
     Indication: EYE DISORDER
     Dosage: Q1H, OPHTHALMIC
     Route: 047
     Dates: start: 20040101, end: 20040401

REACTIONS (17)
  - BLINDNESS [None]
  - BLOOD GLUCOSE FLUCTUATION [None]
  - CATHETER SITE RELATED REACTION [None]
  - CONSTIPATION [None]
  - CONTUSION [None]
  - DIABETES MELLITUS NON-INSULIN-DEPENDENT [None]
  - DIZZINESS [None]
  - DRUG INEFFECTIVE [None]
  - DYSSTASIA [None]
  - DYSURIA [None]
  - EYE IRRITATION [None]
  - EYE PRURITUS [None]
  - EYE REDNESS [None]
  - GASTRIC HAEMORRHAGE [None]
  - GASTRIC ULCER PERFORATION [None]
  - KERATOCONJUNCTIVITIS SICCA [None]
  - VISION BLURRED [None]
